FAERS Safety Report 4283584-6 (Version None)
Quarter: 2004Q1

REPORT INFORMATION
  Report Type: 
  Country: None (occurrence: None)
  Receive Date: 20040202
  Receipt Date: 20040116
  Transmission Date: 20041129
  Serious: Yes (Death, Hospitalization)
  Sender: FDA-Public Use
  Company Number: TH-GLAXOSMITHKLINE-B0320122A

PATIENT
  Age: 24 Year
  Sex: Female
  Weight: 87 kg

DRUGS (5)
  1. ROSIGLITAZONE MALEATE [Suspect]
     Indication: DIABETES MELLITUS NON-INSULIN-DEPENDENT
     Dosage: 4MG PER DAY
     Route: 048
     Dates: end: 20031001
  2. INSULATARD NPH HUMAN [Concomitant]
     Indication: DIABETES MELLITUS
     Route: 058
     Dates: end: 20040114
  3. METFORMIN HCL [Concomitant]
     Indication: DIABETES MELLITUS
     Dosage: 6TAB PER DAY
     Route: 048
  4. SULFONYLUREA [Concomitant]
  5. BEZAFIBRATE [Concomitant]
     Indication: DYSLIPIDAEMIA

REACTIONS (19)
  - ACIDOSIS [None]
  - ACUTE PULMONARY OEDEMA [None]
  - ALBUMINURIA [None]
  - ASCITES [None]
  - BUNDLE BRANCH BLOCK RIGHT [None]
  - CARDIAC FAILURE [None]
  - DRUG INEFFECTIVE [None]
  - DRUG RESISTANCE [None]
  - DYSPNOEA [None]
  - FLUID RETENTION [None]
  - HYPERKALAEMIA [None]
  - OEDEMA [None]
  - ORTHOPNOEA [None]
  - PLEURAL EFFUSION [None]
  - PULMONARY CONGESTION [None]
  - QRS AXIS ABNORMAL [None]
  - SINUS TACHYCARDIA [None]
  - SPUTUM DISCOLOURED [None]
  - TACHYPNOEA [None]
